FAERS Safety Report 25315633 (Version 1)
Quarter: 2025Q2

REPORT INFORMATION
  Report Type: Report from Study
  Country: CA (occurrence: CA)
  Receive Date: 20250515
  Receipt Date: 20250515
  Transmission Date: 20250717
  Serious: Yes (Other)
  Sender: TAKEDA
  Company Number: CA-TAKEDA-2025TUS045247

PATIENT
  Sex: Female

DRUGS (16)
  1. VEDOLIZUMAB [Suspect]
     Active Substance: VEDOLIZUMAB
     Indication: Colitis ulcerative
  2. VEDOLIZUMAB [Suspect]
     Active Substance: VEDOLIZUMAB
     Dosage: 300 MILLIGRAM, Q4WEEKS
     Dates: start: 20190603
  3. WEGOVY [Suspect]
     Active Substance: SEMAGLUTIDE
     Indication: Product used for unknown indication
  4. Ultran [Concomitant]
  5. MESALAMINE [Concomitant]
     Active Substance: MESALAMINE
  6. IMODIUM [Concomitant]
     Active Substance: LOPERAMIDE HYDROCHLORIDE
  7. DICYCLOMINE HYDROCHLORIDE [Concomitant]
     Active Substance: DICYCLOMINE HYDROCHLORIDE
  8. FERROUS SULFATE [Concomitant]
     Active Substance: FERROUS SULFATE
  9. ULIPRISTAL [Concomitant]
     Active Substance: ULIPRISTAL
  10. TRANEXAMIC ACID [Concomitant]
     Active Substance: TRANEXAMIC ACID
  11. Salofalk [Concomitant]
  12. POLYETHYLENE GLYCOL 3350 [Concomitant]
     Active Substance: POLYETHYLENE GLYCOL 3350
  13. CORTISONE [Concomitant]
     Active Substance: CORTISONE
  14. COLACE [Concomitant]
     Active Substance: DOCUSATE SODIUM
  15. SENNOSIDES A AND B [Concomitant]
     Active Substance: SENNOSIDES A AND B
  16. UCERIS [Concomitant]
     Active Substance: BUDESONIDE

REACTIONS (2)
  - Haematochezia [Recovering/Resolving]
  - Weight decreased [Unknown]
